FAERS Safety Report 7577030-4 (Version None)
Quarter: 2011Q2

REPORT INFORMATION
  Report Type: 
  Country: None (occurrence: None)
  Receive Date: 20110628
  Receipt Date: 20110623
  Transmission Date: 20111010
  Serious: No
  Sender: FDA-Public Use
  Company Number: US-PFIZER INC-2011140701

PATIENT
  Sex: Female

DRUGS (3)
  1. PRISTIQ [Suspect]
     Dosage: UNK
     Dates: start: 20080101
  2. VENLAFAXINE HCL [Suspect]
     Dosage: UNK
  3. EFFEXOR [Suspect]

REACTIONS (2)
  - DIARRHOEA [None]
  - NAUSEA [None]
